FAERS Safety Report 14635420 (Version 1)
Quarter: 2018Q1

REPORT INFORMATION
  Report Type: Spontaneous
  Country: JP (occurrence: JP)
  Receive Date: 20180314
  Receipt Date: 20180314
  Transmission Date: 20180509
  Serious: Yes (Other)
  Sender: FDA-Public Use
  Company Number: JP-INDIVIOR LIMITED-INDV-109564-2018

PATIENT
  Age: 29 Year
  Sex: Male
  Weight: 103 kg

DRUGS (6)
  1. NAFAMOSTAT MESILATE [Concomitant]
     Active Substance: NAFAMOSTAT MESYLATE
     Indication: PANCREATITIS ACUTE
     Dosage: 20MG, DAILY
     Route: 065
  2. ULINASTATIN [Concomitant]
     Active Substance: ULINASTATIN
     Indication: PANCREATITIS ACUTE
     Dosage: 150000 U, DAILY
     Route: 065
  3. LEPETAN [Suspect]
     Active Substance: BUPRENORPHINE HYDROCHLORIDE
     Indication: PANCREATITIS ACUTE
     Dosage: 2.4 MG, DAILY
     Route: 065
  4. INSULIN HUMAN [Concomitant]
     Active Substance: INSULIN HUMAN
     Indication: PRODUCT USED FOR UNKNOWN INDICATION
     Dosage: 4.7 U/HOUR
     Route: 065
  5. HEPARIN [Concomitant]
     Active Substance: HEPARIN SODIUM
     Indication: HYPERLIPIDAEMIA
     Dosage: UNK
     Route: 065
  6. PITAVASTATIN CALCIUM [Concomitant]
     Active Substance: PITAVASTATIN CALCIUM
     Indication: PRODUCT USED FOR UNKNOWN INDICATION
     Dosage: 4MG, DAILY
     Route: 048

REACTIONS (2)
  - Product use in unapproved indication [Unknown]
  - Respiratory failure [Unknown]
